FAERS Safety Report 11436042 (Version 1)
Quarter: 2015Q3

REPORT INFORMATION
  Report Type: Spontaneous
  Country: US (occurrence: US)
  Receive Date: 20150821
  Receipt Date: 20150821
  Transmission Date: 20151125
  Serious: No
  Sender: FDA-Public Use
  Company Number: US-ELI_LILLY_AND_COMPANY-US201402006712

PATIENT
  Sex: Male
  Weight: 156.92 kg

DRUGS (1)
  1. INSULIN HUMAN [Suspect]
     Active Substance: INSULIN HUMAN
     Indication: PRODUCT USED FOR UNKNOWN INDICATION
     Route: 058

REACTIONS (6)
  - Infusion site irritation [Unknown]
  - Infusion site nodule [Unknown]
  - Wrong technique in product usage process [Unknown]
  - Infusion site infection [Unknown]
  - Infusion site haemorrhage [Unknown]
  - Infusion site pain [Unknown]
